FAERS Safety Report 8327897-7 (Version None)
Quarter: 2012Q2

REPORT INFORMATION
  Report Type: 
  Country: None (occurrence: None)
  Receive Date: 20120502
  Receipt Date: 20120423
  Transmission Date: 20120825
  Serious: Yes (Hospitalization, Other)
  Sender: FDA-Public Use
  Company Number: US-BAYER-2011-112498

PATIENT
  Age: 43 Year
  Sex: Female

DRUGS (7)
  1. YASMIN [Suspect]
  2. GABAPENTIN [Concomitant]
     Dosage: UNK UNK, BID
  3. TEGRETOL [Concomitant]
     Dosage: 400 MG, BID
  4. DEPO-PROVERA [Concomitant]
     Dosage: UNK
     Dates: end: 20091001
  5. YAZ [Suspect]
  6. ZOCOR [Concomitant]
  7. LOVAZA [Concomitant]

REACTIONS (8)
  - CEREBROVASCULAR ACCIDENT [None]
  - MYOCARDIAL INFARCTION [None]
  - PULMONARY EMBOLISM [None]
  - TRANSIENT ISCHAEMIC ATTACK [None]
  - PAIN [None]
  - EMOTIONAL DISTRESS [None]
  - THROMBOSIS [None]
  - INJURY [None]
